FAERS Safety Report 18851349 (Version 2)
Quarter: 2021Q1

REPORT INFORMATION
  Report Type: Spontaneous
  Country: US (occurrence: US)
  Receive Date: 20210205
  Receipt Date: 20210311
  Transmission Date: 20210420
  Serious: Yes (Life-Threatening, Hospitalization, Other)
  Sender: FDA-Public Use
  Company Number: US-MACLEODS PHARMACEUTICALS US LTD-MAC2021030001

PATIENT

DRUGS (1)
  1. QUETIAPINE 150 MG [Suspect]
     Active Substance: QUETIAPINE
     Indication: DEPRESSION
     Dosage: 150 MILLIGRAM, QD
     Route: 048

REACTIONS (3)
  - Pancreatitis relapsing [Recovered/Resolved]
  - Diabetic ketoacidosis [Recovered/Resolved]
  - Hypertriglyceridaemia [Recovered/Resolved]
